FAERS Safety Report 8034206-X (Version None)
Quarter: 2012Q1

REPORT INFORMATION
  Report Type: 
  Country: None (occurrence: None)
  Receive Date: 20120110
  Receipt Date: 20120106
  Transmission Date: 20120608
  Serious: Yes (Other)
  Sender: FDA-Public Use
  Company Number: US-ROCHE-1028557

PATIENT
  Sex: Female

DRUGS (2)
  1. ACTEMRA [Suspect]
     Route: 042
  2. ACTEMRA [Suspect]
     Indication: RHEUMATOID ARTHRITIS
     Route: 042

REACTIONS (2)
  - APHTHOUS STOMATITIS [None]
  - COLITIS ULCERATIVE [None]
